FAERS Safety Report 6221478-7 (Version None)
Quarter: 2009Q2

REPORT INFORMATION
  Report Type: 
  Country: None (occurrence: None)
  Receive Date: 20090610
  Receipt Date: 20080807
  Transmission Date: 20091009
  Serious: Yes (Other)
  Sender: FDA-Public Use
  Company Number: ZA-JNJFOC-20080801946

PATIENT
  Sex: Female

DRUGS (2)
  1. SINUMAX CO [Suspect]
     Indication: INFLUENZA
     Route: 048
  2. CONTRACEPTIVE PILL [Concomitant]
     Indication: CONTRACEPTION
     Route: 048

REACTIONS (6)
  - ASTHENIA [None]
  - DYSPEPSIA [None]
  - FEELING ABNORMAL [None]
  - HEADACHE [None]
  - LOSS OF CONSCIOUSNESS [None]
  - NAUSEA [None]
